FAERS Safety Report 15674806 (Version 2)
Quarter: 2018Q4

REPORT INFORMATION
  Report Type: Spontaneous
  Country: JP (occurrence: JP)
  Receive Date: 20181130
  Receipt Date: 20181211
  Transmission Date: 20190205
  Serious: Yes (Life-Threatening, Hospitalization, Other)
  Sender: FDA-Public Use
  Company Number: JP-ACCORD-093995

PATIENT
  Age: 83 Year
  Sex: Female

DRUGS (4)
  1. CLARITHROMYCIN. [Concomitant]
     Active Substance: CLARITHROMYCIN
     Dosage: 400 MG, B.I.D.
  2. AMOXICILLIN. [Concomitant]
     Active Substance: AMOXICILLIN
     Dosage: 750 MG, B.I.D. FOR 7 DAYS
  3. METHOTREXATE. [Suspect]
     Active Substance: METHOTREXATE
     Indication: RHEUMATOID ARTHRITIS
     Dosage: 4 MG/WEEK
     Dates: start: 2010, end: 201706
  4. VONOPRAZAN [Concomitant]
     Active Substance: VONOPRAZAN
     Dosage: 20 MG, TWICE DAILY

REACTIONS (3)
  - Epstein-Barr virus infection [Recovered/Resolved]
  - Helicobacter infection [Recovered/Resolved]
  - Lymphoproliferative disorder [Recovered/Resolved]

NARRATIVE: CASE EVENT DATE: 201706
